FAERS Safety Report 9639875 (Version 1)
Quarter: 2013Q4

REPORT INFORMATION
  Report Type: Spontaneous
  Country: US (occurrence: None)
  Receive Date: 20131021
  Receipt Date: 20131021
  Transmission Date: 20140711
  Serious: Yes (Life-Threatening, Hospitalization, Other)
  Sender: FDA-Public Use
  Company Number: None

PATIENT
  Age: 58 Year
  Sex: Male
  Weight: 58.97 kg

DRUGS (1)
  1. DIALYSIS SOLUTION [Suspect]
     Indication: DIALYSIS
     Dosage: ONCE DAILY, INTO A VEIN
     Dates: start: 20111001, end: 20131001

REACTIONS (2)
  - Dyspnoea [None]
  - Coronary artery occlusion [None]
